FAERS Safety Report 9877910 (Version 1)
Quarter: 2014Q1

REPORT INFORMATION
  Report Type: Spontaneous
  Country: DE (occurrence: DE)
  Receive Date: 20140206
  Receipt Date: 20140206
  Transmission Date: 20141002
  Serious: Yes (Other)
  Sender: FDA-Public Use
  Company Number: DE-ABBVIE-14P-062-1195260-00

PATIENT
  Sex: 0

DRUGS (2)
  1. ADALIMUMAB [Suspect]
     Indication: IRIDOCYCLITIS
     Route: 058
  2. ADALIMUMAB [Suspect]
     Route: 058

REACTIONS (1)
  - Henoch-Schonlein purpura [Unknown]
